FAERS Safety Report 4396097-8 (Version None)
Quarter: 2004Q2

REPORT INFORMATION
  Report Type: 
  Country: None (occurrence: None)
  Receive Date: 20040621
  Receipt Date: 20031121
  Transmission Date: 20050107
  Serious: Yes (Death)
  Sender: FDA-Public Use
  Company Number: USA-2003-0011031

PATIENT
  Age: 38 Year
  Sex: Female
  Weight: 54.9 kg

DRUGS (11)
  1. OXYCODONE HCL [Suspect]
  2. CHOLINE MAGNESIUM TRISALYCILATE (CHOLINE MAGNESIUM TRISALICYLATE) [Suspect]
  3. ZONISAMIDE (ZONISAMIDE) [Suspect]
  4. TEMAZEPAM [Suspect]
  5. GABAPENTIN [Suspect]
  6. NEURONTIN [Suspect]
  7. CELEXA [Suspect]
  8. REMERON [Suspect]
  9. CITALOPRAM (CITALOPRAM) [Suspect]
  10. OXAZEPAM [Suspect]
  11. DANAZOL [Concomitant]

REACTIONS (2)
  - ACCIDENTAL OVERDOSE [None]
  - MULTIPLE DRUG OVERDOSE [None]
